FAERS Safety Report 4863263-4 (Version None)
Quarter: 2005Q4

REPORT INFORMATION
  Report Type: 
  Country: None (occurrence: None)
  Receive Date: 20051219
  Receipt Date: 20051201
  Transmission Date: 20060501
  Serious: Yes (Death, Hospitalization)
  Sender: FDA-Public Use
  Company Number: 220288

PATIENT
  Age: 48 Year
  Sex: Female

DRUGS (2)
  1. AVASTIN(BEVACIZUMAB) PWDR + SOVENT,INFUSION SOLN, 100MG [Suspect]
     Indication: OVARIAN CANCER
     Dosage: 10 MG/KG, INTRAVENOUS
     Route: 042
     Dates: start: 20040601, end: 20051019
  2. CYCLOPHOSPHAMIDE [Concomitant]
     Indication: OVARIAN CANCER
     Dosage: 50 MG, QD, ORAL
     Route: 048
     Dates: start: 20040601, end: 20051018

REACTIONS (4)
  - ACUTE ABDOMEN [None]
  - CARDIOPULMONARY FAILURE [None]
  - GASTROINTESTINAL PERFORATION [None]
  - HYPOTENSION [None]
